FAERS Safety Report 17941382 (Version 2)
Quarter: 2020Q2

REPORT INFORMATION
  Report Type: Report from Study
  Country: US (occurrence: US)
  Receive Date: 20200624
  Receipt Date: 20200630
  Transmission Date: 20200714
  Serious: Yes (Other)
  Sender: FDA-Public Use
  Company Number: US-ACTELION-A-US2020-206393

PATIENT
  Age: 73 Year
  Sex: Female

DRUGS (2)
  1. UPTRAVI [Suspect]
     Active Substance: SELEXIPAG
     Indication: PRODUCT USED FOR UNKNOWN INDICATION
     Dosage: 400 MCG, BID
     Route: 048
     Dates: end: 20200610
  2. OPSUMIT [Suspect]
     Active Substance: MACITENTAN
     Indication: PRODUCT USED FOR UNKNOWN INDICATION
     Route: 048

REACTIONS (18)
  - Diarrhoea [Unknown]
  - Decreased appetite [Unknown]
  - Chills [Unknown]
  - Unevaluable event [Unknown]
  - Mobility decreased [Unknown]
  - Weight decreased [Unknown]
  - Feeling of body temperature change [Unknown]
  - Dyspnoea [Unknown]
  - Hypotension [Unknown]
  - Malaise [Unknown]
  - Palpitations [Unknown]
  - Blood pressure diastolic decreased [Unknown]
  - Tremor [Unknown]
  - Fear [Unknown]
  - Heart rate increased [Unknown]
  - Nasopharyngitis [Unknown]
  - Body temperature increased [Unknown]
  - Tachypnoea [Unknown]

NARRATIVE: CASE EVENT DATE: 20200608
